FAERS Safety Report 5928070-X (Version None)
Quarter: 2008Q4

REPORT INFORMATION
  Report Type: 
  Country: None (occurrence: None)
  Receive Date: 20081023
  Receipt Date: 20081017
  Transmission Date: 20090506
  Serious: Yes (Other)
  Sender: FDA-Public Use
  Company Number: A0753353A

PATIENT
  Age: 61 Year
  Sex: Female

DRUGS (4)
  1. AVANDIA [Suspect]
     Route: 048
     Dates: end: 20050801
  2. IBUPROFEN [Concomitant]
  3. PAXIL [Concomitant]
  4. LORATADINE [Concomitant]

REACTIONS (1)
  - MYOCARDIAL INFARCTION [None]
